FAERS Safety Report 9105089 (Version 3)
Quarter: 2013Q1

REPORT INFORMATION
  Report Type: Spontaneous
  Country: PL (occurrence: PL)
  Receive Date: 20130220
  Receipt Date: 20130320
  Transmission Date: 20140127
  Serious: Yes (Hospitalization)
  Sender: FDA-Public Use
  Company Number: PL-ABBOTT-13P-129-1045679-00

PATIENT
  Age: 62 Year
  Sex: Female
  Weight: 65 kg

DRUGS (9)
  1. HUMIRA [Suspect]
     Indication: PSORIATIC ARTHROPATHY
     Route: 058
     Dates: start: 20120517, end: 20130121
  2. HUMIRA [Suspect]
  3. ANTI-HYPERTENSIVES [Concomitant]
     Indication: PRODUCT USED FOR UNKNOWN INDICATION
  4. LETROX [Concomitant]
     Indication: HYPOTHYROIDISM
     Dosage: 100 MCG DAILY
     Route: 048
  5. ZYRTEC [Concomitant]
     Indication: HYPERSENSITIVITY
     Dosage: 10 MG DAILY
     Route: 048
  6. POLPRAZOL [Concomitant]
     Indication: GASTROOESOPHAGEAL REFLUX DISEASE
     Dosage: 20 MG DAILY
     Route: 048
  7. AMLOZEK [Concomitant]
     Indication: HYPERTENSION
     Route: 048
  8. METHOTREXATE [Concomitant]
     Indication: PSORIATIC ARTHROPATHY
     Route: 048
  9. FOLIC ACID [Concomitant]
     Indication: VITAMIN SUPPLEMENTATION
     Route: 048

REACTIONS (2)
  - Cough [Not Recovered/Not Resolved]
  - Drug hypersensitivity [Unknown]
